FAERS Safety Report 10154088 (Version 1)
Quarter: 2014Q2

REPORT INFORMATION
  Report Type: Report from Study
  Country: GB (occurrence: GB)
  Receive Date: 20140506
  Receipt Date: 20140506
  Transmission Date: 20141212
  Serious: Yes (Death)
  Sender: FDA-Public Use
  Company Number: GB-AMGEN-GBRCT2014032439

PATIENT
  Age: 59 Year
  Sex: Female

DRUGS (5)
  1. ETANERCEPT [Suspect]
     Indication: PRODUCT USED FOR UNKNOWN INDICATION
     Dosage: 50 MG, WEEKLY
     Route: 065
     Dates: start: 20081110, end: 20090218
  2. SIMVASTATIN [Concomitant]
     Dosage: UNK
     Dates: start: 20080915
  3. CO-CODAMOL [Concomitant]
     Dosage: UNK
     Dates: start: 20070207
  4. ACETYLSALICYLIC ACID [Concomitant]
     Dosage: UNK
     Dates: start: 20080220
  5. LEFLUNOMIDE [Concomitant]
     Dosage: UNK
     Dates: start: 20071101

REACTIONS (4)
  - Tongue neoplasm malignant stage unspecified [Fatal]
  - Myocardial ischaemia [Fatal]
  - Psoriatic arthropathy [Fatal]
  - Adrenal insufficiency [Fatal]
